FAERS Safety Report 5336742-3 (Version None)
Quarter: 2007Q2

REPORT INFORMATION
  Report Type: 
  Country: None (occurrence: None)
  Receive Date: 20070529
  Receipt Date: 20070518
  Transmission Date: 20071010
  Serious: Yes (Other)
  Sender: FDA-Public Use
  Company Number: PHBS2007JP08251

PATIENT
  Age: 74 Year
  Sex: Female

DRUGS (1)
  1. TEGRETOL [Suspect]
     Indication: EPILEPSY
     Dosage: 2.5 G/DAY
     Route: 048

REACTIONS (2)
  - CARDIAC ARREST [None]
  - SUPRAVENTRICULAR TACHYCARDIA [None]
